FAERS Safety Report 19935811 (Version 1)
Quarter: 2021Q4

REPORT INFORMATION
  Report Type: Spontaneous
  Country: JP (occurrence: JP)
  Receive Date: 20211008
  Receipt Date: 20211008
  Transmission Date: 20220303
  Serious: Yes (Other)
  Sender: FDA-Public Use
  Company Number: JP-TAKEDA-2021TUS062129

PATIENT
  Age: 35 Year
  Sex: Male

DRUGS (1)
  1. LIALDA [Suspect]
     Active Substance: MESALAMINE
     Indication: Colitis ulcerative
     Dosage: 4800 MILLIGRAM, QD
     Route: 048

REACTIONS (3)
  - Haematochezia [Recovered/Resolved]
  - Colitis ulcerative [Unknown]
  - Rectal tenesmus [Recovered/Resolved]
